FAERS Safety Report 16899918 (Version 1)
Quarter: 2019Q4

REPORT INFORMATION
  Report Type: Spontaneous
  Country: US (occurrence: US)
  Receive Date: 20190815
  Receipt Date: 20190815
  Transmission Date: 20200122
  Serious: No
  Sender: FDA-Public Use
  Company Number: None

PATIENT
  Sex: Female

DRUGS (1)
  1. MAVYRET [Suspect]
     Active Substance: GLECAPREVIR\PIBRENTASVIR
     Indication: CHRONIC HEPATITIS C
     Dosage: ?          OTHER DOSE:300MG/120MG;?
     Route: 048
     Dates: start: 20190724

REACTIONS (7)
  - Dyspnoea [None]
  - Asthenia [None]
  - Nervousness [None]
  - Feeling abnormal [None]
  - Heart rate [None]
  - Visual impairment [None]
  - Anxiety [None]
